FAERS Safety Report 9385210 (Version 1)
Quarter: 2013Q3

REPORT INFORMATION
  Report Type: Spontaneous
  Country: US (occurrence: US)
  Receive Date: 20130705
  Receipt Date: 20130705
  Transmission Date: 20140515
  Serious: Yes (Death, Hospitalization)
  Sender: FDA-Public Use
  Company Number: US-GLAXOSMITHKLINE-A0836288A

PATIENT
  Age: 73 Year
  Sex: Female
  Weight: 80 kg

DRUGS (1)
  1. AVANDIA [Suspect]
     Indication: TYPE 2 DIABETES MELLITUS
     Route: 048
     Dates: start: 200512

REACTIONS (8)
  - Death [Fatal]
  - Cardiac failure congestive [Unknown]
  - Carotid artery occlusion [Unknown]
  - Carotid artery stenosis [Unknown]
  - Right ventricular hypertrophy [Unknown]
  - Coronary artery disease [Unknown]
  - Mitral valve incompetence [Unknown]
  - Myocardial ischaemia [Unknown]
